FAERS Safety Report 21759993 (Version 1)
Quarter: 2022Q4

REPORT INFORMATION
  Report Type: Spontaneous
  Country: US (occurrence: None)
  Receive Date: 20221220
  Receipt Date: 20221220
  Transmission Date: 20230112
  Serious: Yes (Hospitalization)
  Sender: FDA-Public Use
  Company Number: None

PATIENT
  Sex: Male

DRUGS (2)
  1. BENEFIX [Suspect]
     Active Substance: COAGULATION FACTOR IX RECOMBINANT HUMAN\ISOPROPYL ALCOHOL
     Indication: Factor IX deficiency
     Dosage: OTHER QUANTITY : 2800 UNITS ;?OTHER FREQUENCY : 24 HOURS FOR 3 DAY;?
     Route: 042
     Dates: start: 202209
  2. BENEFIX [Suspect]
     Active Substance: COAGULATION FACTOR IX RECOMBINANT HUMAN\ISOPROPYL ALCOHOL
     Indication: Factor IX deficiency
     Dosage: OTHER QUANTITY : 3700 UNITS;?OTHER FREQUENCY : 24 HOURS AS NEEDED;?
     Route: 042
     Dates: start: 202209

REACTIONS (1)
  - Haemorrhage [None]
